FAERS Safety Report 9036768 (Version 1)
Quarter: 2013Q1

REPORT INFORMATION
  Report Type: Spontaneous
  Country: GB (occurrence: None)
  Receive Date: 20130114
  Receipt Date: 20130114
  Transmission Date: 20140127
  Serious: Yes (Other)
  Sender: FDA-Public Use
  Company Number: 2012-23441

PATIENT
  Age: 46 Year
  Sex: Male
  Weight: 95 kg

DRUGS (1)
  1. NAPROXEN [Suspect]
     Indication: MUSCULOSKELETAL PAIN
     Route: 048
     Dates: start: 20120322, end: 20120517

REACTIONS (2)
  - Sudden hearing loss [None]
  - Tinnitus [None]
